FAERS Safety Report 11738176 (Version 1)
Quarter: 2015Q4

REPORT INFORMATION
  Report Type: Spontaneous
  Country: US (occurrence: US)
  Receive Date: 20151110
  Receipt Date: 20151110
  Transmission Date: 20160304
  Serious: No
  Sender: FDA-Public Use
  Company Number: US-ELI_LILLY_AND_COMPANY-US201207007600

PATIENT
  Age: 83 Year
  Sex: Female

DRUGS (2)
  1. FORTEO [Suspect]
     Active Substance: TERIPARATIDE
     Indication: OSTEOPOROSIS
     Dosage: G20 UG, QD
  2. LAXATIVES [Concomitant]
     Active Substance: UNSPECIFIED INGREDIENT
     Indication: CONSTIPATION

REACTIONS (9)
  - Asthenia [Unknown]
  - Bradyphrenia [Unknown]
  - Listless [Unknown]
  - Gait disturbance [Unknown]
  - Infrequent bowel movements [Unknown]
  - Constipation [Unknown]
  - Myalgia [Unknown]
  - Muscular weakness [Unknown]
  - Heart rate decreased [Unknown]

NARRATIVE: CASE EVENT DATE: 201207
